FAERS Safety Report 8543463-2 (Version None)
Quarter: 2012Q3

REPORT INFORMATION
  Report Type: 
  Country: None (occurrence: None)
  Receive Date: 20120727
  Receipt Date: 20120723
  Transmission Date: 20120928
  Serious: Yes (Other)
  Sender: FDA-Public Use
  Company Number: PHHY2010FR32668

PATIENT
  Sex: Female

DRUGS (3)
  1. FOLIC ACID [Concomitant]
     Route: 064
  2. TEGRETOL [Suspect]
     Indication: EPILEPSY
     Dosage: 800 MG, UNK
     Route: 064
     Dates: start: 19980101
  3. KEPPRA [Suspect]
     Dosage: 3000 MG, DAILY, DURING THE THREE TRIMESTERS OF PREGNANCY
     Route: 064

REACTIONS (2)
  - FOETAL GROWTH RESTRICTION [None]
  - MATERNAL EXPOSURE DURING PREGNANCY [None]
